FAERS Safety Report 9715979 (Version 2)
Quarter: 2013Q4

REPORT INFORMATION
  Report Type: Spontaneous
  Country: FR (occurrence: FR)
  Receive Date: 20131127
  Receipt Date: 20131222
  Transmission Date: 20140711
  Serious: Yes (Hospitalization)
  Sender: FDA-Public Use
  Company Number: FR-ABBVIE-13P-056-1173344-00

PATIENT
  Age: 48 Year
  Sex: Female

DRUGS (11)
  1. ENANTONE LP (LEUPRORELIN ACETATE) [Suspect]
     Indication: PRODUCT USED FOR UNKNOWN INDICATION
     Route: 030
     Dates: start: 20101007
  2. TAMOXIFENE [Concomitant]
     Indication: PRODUCT USED FOR UNKNOWN INDICATION
     Dates: start: 200903, end: 201010
  3. GUTRON [Concomitant]
     Indication: PRODUCT USED FOR UNKNOWN INDICATION
  4. DEXTROPROPOXYPHENE [Concomitant]
     Indication: PRODUCT USED FOR UNKNOWN INDICATION
  5. TRAMADOL [Concomitant]
     Indication: PRODUCT USED FOR UNKNOWN INDICATION
  6. TRAMADOL HYDROCHLORIDE [Concomitant]
     Indication: PRODUCT USED FOR UNKNOWN INDICATION
  7. LOCACID [Concomitant]
     Indication: PRODUCT USED FOR UNKNOWN INDICATION
  8. ULCAR [Concomitant]
     Indication: PRODUCT USED FOR UNKNOWN INDICATION
  9. AVLOCARDYL [Concomitant]
     Indication: PRODUCT USED FOR UNKNOWN INDICATION
  10. MAG 2 [Concomitant]
     Indication: PRODUCT USED FOR UNKNOWN INDICATION
  11. BROMAZEPAM [Concomitant]
     Indication: PRODUCT USED FOR UNKNOWN INDICATION
     Dates: end: 20131219

REACTIONS (6)
  - Depressive symptom [Unknown]
  - Overdose [Unknown]
  - Intentional drug misuse [Unknown]
  - Depressed level of consciousness [Unknown]
  - Malaise [None]
  - Eating disorder [None]
